FAERS Safety Report 5927024-7 (Version None)
Quarter: 2008Q4

REPORT INFORMATION
  Report Type: 
  Country: None (occurrence: None)
  Receive Date: 20081021
  Receipt Date: 20081021
  Transmission Date: 20090506
  Serious: Yes (Hospitalization)
  Sender: FDA-Public Use
  Company Number: None

PATIENT
  Age: 63 Year
  Sex: Male

DRUGS (1)
  1. VANCOMYCIN HYDROCHLORIDE [Suspect]
     Indication: WOUND INFECTION STAPHYLOCOCCAL
     Dosage: 1000 MG BID IV
     Route: 042
     Dates: start: 20080727, end: 20080804

REACTIONS (1)
  - RENAL FAILURE ACUTE [None]
